FAERS Safety Report 7374015-8 (Version None)
Quarter: 2011Q1

REPORT INFORMATION
  Report Type: 
  Country: None (occurrence: None)
  Receive Date: 20110315
  Receipt Date: 20110310
  Transmission Date: 20110831
  Serious: Yes (Hospitalization)
  Sender: FDA-Public Use
  Company Number: WAES 1103DEU00044

PATIENT
  Age: 72 Year
  Sex: Female

DRUGS (4)
  1. BISOPROLOL FUMARATE [Concomitant]
  2. FOSAMAX [Suspect]
     Dosage: 70 MG/WKY PO
     Route: 048
     Dates: start: 20100422
  3. OLMESARTAN MEDOXOMIL [Concomitant]
  4. PANTOPRAZOLE [Concomitant]

REACTIONS (1)
  - TRANSIENT ISCHAEMIC ATTACK [None]
